FAERS Safety Report 25993553 (Version 5)
Quarter: 2025Q4

REPORT INFORMATION
  Report Type: Spontaneous
  Country: EU (occurrence: EU)
  Receive Date: 20251104
  Receipt Date: 20251229
  Transmission Date: 20260118
  Serious: Yes (Other)
  Sender: CELLTRION
  Company Number: EU-SANDOZ-SDZ2025FI078442

PATIENT

DRUGS (17)
  1. ADALIMUMAB [Suspect]
     Active Substance: ADALIMUMAB
     Indication: Hidradenitis
     Dosage: 40MG/WEEK
     Route: 065
     Dates: start: 2023
  2. ADALIMUMAB [Suspect]
     Active Substance: ADALIMUMAB
     Dosage: 80MG/WEEK
     Route: 065
     Dates: start: 202401
  3. METFORMIN [Suspect]
     Active Substance: METFORMIN HYDROCHLORIDE
     Indication: Hidradenitis
     Dosage: UNK
     Route: 065
  4. METFORMIN [Suspect]
     Active Substance: METFORMIN HYDROCHLORIDE
     Dosage: UNK
     Route: 065
  5. METFORMIN HYDROCHLORIDE [Suspect]
     Active Substance: METFORMIN HYDROCHLORIDE
     Indication: Hidradenitis
     Dosage: UNK
     Route: 065
  6. METFORMIN HYDROCHLORIDE [Suspect]
     Active Substance: METFORMIN HYDROCHLORIDE
     Dosage: UNK
     Route: 065
  7. COSENTYX [Suspect]
     Active Substance: SECUKINUMAB
     Indication: Hidradenitis
     Dosage: 300 MG
     Route: 058
     Dates: start: 202411, end: 20250303
  8. COSENTYX [Suspect]
     Active Substance: SECUKINUMAB
     Dosage: 300 MG, QMO
     Route: 058
     Dates: start: 202412, end: 20250303
  9. COSENTYX [Suspect]
     Active Substance: SECUKINUMAB
     Dosage: 300 MG, Q2W (START DATE: 10-APR-2025/STOP DATE: 03-MAR-2025)
     Route: 065
  10. COSENTYX [Suspect]
     Active Substance: SECUKINUMAB
     Dosage: 300 MG, Q2W (START DATE: 26-MAY-2025/STOP DATE: 03-MAR-2025)
     Route: 065
  11. COSENTYX [Suspect]
     Active Substance: SECUKINUMAB
     Dosage: 300 MG, Q2W (START DATE: 03-NOV-2025/STOP DATE: 03-MAR-2025)
     Route: 058
  12. DIANE NOVA [Concomitant]
     Indication: Product used for unknown indication
     Dosage: UNK
     Route: 065
  13. METFORMIN [Concomitant]
     Active Substance: METFORMIN HYDROCHLORIDE
     Indication: Product used for unknown indication
     Dosage: UNK
     Route: 065
  14. PREDNISOLONE [Concomitant]
     Active Substance: PREDNISOLONE
     Indication: Product used for unknown indication
     Dosage: 20 MG, QD
     Route: 048
     Dates: start: 20250410
  15. PREDNISOLONE [Concomitant]
     Active Substance: PREDNISOLONE
     Dosage: 20 MG (/VRK)
     Route: 065
     Dates: start: 20250526
  16. LYMECYCLINE [Concomitant]
     Active Substance: LYMECYCLINE
     Indication: Product used for unknown indication
     Dosage: UNK (3 MONTH)
     Route: 048
  17. LYMECYCLINE [Concomitant]
     Active Substance: LYMECYCLINE
     Dosage: UNK (3 MONTH)
     Route: 048

REACTIONS (5)
  - Pyoderma gangrenosum [Not Recovered/Not Resolved]
  - Ulcer [Not Recovered/Not Resolved]
  - Product use in unapproved indication [Unknown]
  - Therapeutic product effect incomplete [Unknown]
  - Therapeutic response decreased [Not Recovered/Not Resolved]

NARRATIVE: CASE EVENT DATE: 20250101
